FAERS Safety Report 10655513 (Version 1)
Quarter: 2014Q4

REPORT INFORMATION
  Report Type: Spontaneous
  Country: US (occurrence: None)
  Receive Date: 20141215
  Receipt Date: 20141215
  Transmission Date: 20150529
  Serious: No
  Sender: FDA-Public Use
  Company Number: None

PATIENT
  Age: 38 Year
  Sex: Female
  Weight: 97.98 kg

DRUGS (1)
  1. FRUIT SMOOTHIES [Suspect]
     Active Substance: DIMETHICONE\OCTINOXATE\OXYBENZONE
     Indication: LIP DRY
     Dates: start: 20140601, end: 20141213

REACTIONS (2)
  - Pruritus [None]
  - Unevaluable event [None]

NARRATIVE: CASE EVENT DATE: 20141213
